FAERS Safety Report 4881741-9 (Version None)
Quarter: 2006Q1

REPORT INFORMATION
  Report Type: 
  Country: None (occurrence: None)
  Receive Date: 20060116
  Receipt Date: 20051202
  Transmission Date: 20060701
  Serious: Yes (Other)
  Sender: FDA-Public Use
  Company Number: IL-ROCHE-427167

PATIENT
  Age: 48 Year
  Sex: Female

DRUGS (2)
  1. CAPECITABINE [Suspect]
     Route: 048
     Dates: start: 20050508
  2. LAPATINIB [Suspect]
     Route: 048
     Dates: start: 20050505

REACTIONS (1)
  - EJECTION FRACTION DECREASED [None]
